FAERS Safety Report 26105381 (Version 1)
Quarter: 2025Q4

REPORT INFORMATION
  Report Type: Spontaneous
  Country: CN (occurrence: CN)
  Receive Date: 20251201
  Receipt Date: 20251201
  Transmission Date: 20260119
  Serious: Yes (Hospitalization)
  Sender: EMD SERONO INC
  Company Number: CN-Merck Healthcare KGaA-2025060233

PATIENT
  Age: 72 Year
  Sex: Female

DRUGS (1)
  1. GLUCOPHAGE [Suspect]
     Active Substance: METFORMIN HYDROCHLORIDE
     Indication: Blood glucose increased
     Dates: start: 20251016, end: 20251020

REACTIONS (1)
  - Constipation [Recovered/Resolved]

NARRATIVE: CASE EVENT DATE: 20251017
